FAERS Safety Report 19614926 (Version 1)
Quarter: 2021Q3

REPORT INFORMATION
  Report Type: Spontaneous
  Country: IT (occurrence: IT)
  Receive Date: 20210727
  Receipt Date: 20210727
  Transmission Date: 20211014
  Serious: Yes (Other)
  Sender: FDA-Public Use
  Company Number: IT-MYLANLABS-2021M1045497

PATIENT
  Age: 45 Year
  Sex: Female

DRUGS (8)
  1. PACLITAXEL. [Suspect]
     Active Substance: PACLITAXEL
     Indication: ENDOMETRIAL CANCER
     Dosage: 80 MILLIGRAM/SQ. METER, QW
     Route: 065
  2. CARBOPLATIN. [Suspect]
     Active Substance: CARBOPLATIN
     Indication: ENDOMETRIAL CANCER
     Dosage: UNK UNK, QW
     Route: 065
  3. GEMCITABINE. [Suspect]
     Active Substance: GEMCITABINE
     Indication: ABDOMINAL WALL NEOPLASM MALIGNANT
  4. PACLITAXEL. [Suspect]
     Active Substance: PACLITAXEL
     Indication: ABDOMINAL WALL NEOPLASM MALIGNANT
  5. PEGYLATED LIPOSOMAL DOXORUBICIN [Suspect]
     Active Substance: DOXORUBICIN
     Indication: ABDOMINAL WALL NEOPLASM MALIGNANT
  6. CARBOPLATIN. [Suspect]
     Active Substance: CARBOPLATIN
     Indication: ABDOMINAL WALL NEOPLASM MALIGNANT
  7. GEMCITABINE. [Suspect]
     Active Substance: GEMCITABINE
     Indication: ENDOMETRIAL CANCER
     Dosage: 1000 MILLIGRAM/SQ. METER, QW ON DAYS 1?8
     Route: 065
  8. PEGYLATED LIPOSOMAL DOXORUBICIN [Suspect]
     Active Substance: DOXORUBICIN
     Indication: ENDOMETRIAL CANCER
     Dosage: 40 MILLIGRAM/SQ. METER, 28D CYCLE
     Route: 065

REACTIONS (1)
  - Drug ineffective [Unknown]
